FAERS Safety Report 21090310 (Version 1)
Quarter: 2022Q3

REPORT INFORMATION
  Report Type: Spontaneous
  Country: AU (occurrence: AU)
  Receive Date: 20220715
  Receipt Date: 20220715
  Transmission Date: 20221027
  Serious: Yes (Other)
  Sender: FDA-Public Use
  Company Number: AU-SA-SAC20220714000363

PATIENT

DRUGS (1)
  1. LIBTAYO [Suspect]
     Active Substance: CEMIPLIMAB-RWLC
     Indication: Metastases to lymph nodes
     Dosage: UNK
     Route: 065

REACTIONS (1)
  - Enterocolitis [Recovering/Resolving]
